FAERS Safety Report 7659478-2 (Version None)
Quarter: 2011Q3

REPORT INFORMATION
  Report Type: 
  Country: None (occurrence: None)
  Receive Date: 20110805
  Receipt Date: 20110803
  Transmission Date: 20111222
  Serious: Yes (Congenital Anomaly, Other)
  Sender: FDA-Public Use
  Company Number: US-PFIZER INC-2008049858

PATIENT
  Sex: Male
  Weight: 4 kg

DRUGS (1)
  1. ZOLOFT [Suspect]
     Indication: DEPRESSION
     Dosage: UNK
     Route: 064
     Dates: start: 20030601

REACTIONS (4)
  - ELLIPTOCYTOSIS HEREDITARY [None]
  - FALLOT'S TETRALOGY [None]
  - LUNG DISORDER [None]
  - MATERNAL EXPOSURE DURING PREGNANCY [None]
